FAERS Safety Report 8850915 (Version 1)
Quarter: 2012Q4

REPORT INFORMATION
  Report Type: 
  Country: US (occurrence: US)
  Receive Date: 20121019
  Receipt Date: 20121019
  Transmission Date: 20130627
  Serious: No
  Sender: FDA-Public Use
  Company Number: US-PFIZER INC-2012257785

PATIENT
  Age: 71 Year
  Sex: Male

DRUGS (1)
  1. INLYTA [Suspect]
     Indication: NEOPLASM MALIGNANT
     Dosage: 5 mg, 2x/day
     Route: 048
     Dates: start: 20120728

REACTIONS (6)
  - Dry mouth [Unknown]
  - Constipation [Unknown]
  - Blood pressure increased [Unknown]
  - Pruritus [Unknown]
  - Arrhythmia [Unknown]
  - Abdominal discomfort [Unknown]
